FAERS Safety Report 21337876 (Version 1)
Quarter: 2022Q3

REPORT INFORMATION
  Report Type: Spontaneous
  Country: US (occurrence: None)
  Receive Date: 20220915
  Receipt Date: 20220915
  Transmission Date: 20221027
  Serious: Yes (Other)
  Sender: FDA-Public Use
  Company Number: None

PATIENT
  Sex: Female

DRUGS (6)
  1. XELJANZ XR [Suspect]
     Active Substance: TOFACITINIB CITRATE
     Indication: Ankylosing spondylitis
     Dosage: FREQUENCY : DAILY;?
     Route: 048
     Dates: start: 20200109
  2. AVAPRO TAB [Concomitant]
  3. FSH OIL CAP [Concomitant]
  4. SIMPONI [Concomitant]
     Active Substance: GOLIMUMAB
  5. VITAMIN D CAP [Concomitant]
  6. ZOCOR TAB [Concomitant]

REACTIONS (1)
  - Cardiac operation [None]
